FAERS Safety Report 6087097-0 (Version None)
Quarter: 2009Q1

REPORT INFORMATION
  Report Type: 
  Country: None (occurrence: None)
  Receive Date: 20090223
  Receipt Date: 20090213
  Transmission Date: 20090719
  Serious: Yes (Hospitalization, Other)
  Sender: FDA-Public Use
  Company Number: US-ELI_LILLY_AND_COMPANY-US200902003116

PATIENT
  Age: 58 Year
  Sex: Male

DRUGS (4)
  1. BYETTA [Suspect]
     Indication: TYPE 2 DIABETES MELLITUS
     Dosage: 5 UG, UNK
     Route: 058
     Dates: start: 20080201, end: 20080301
  2. BYETTA [Suspect]
     Dosage: 10 UG, UNK
     Dates: start: 20080301
  3. AVANDIA [Concomitant]
     Indication: TYPE 2 DIABETES MELLITUS
  4. GLUCOPHAGE [Concomitant]
     Indication: TYPE 2 DIABETES MELLITUS
     Dosage: 1000 MG, 2/D
     Route: 048

REACTIONS (1)
  - PANCREATIC CARCINOMA METASTATIC [None]
